FAERS Safety Report 14482262 (Version 1)
Quarter: 2018Q1

REPORT INFORMATION
  Report Type: Spontaneous
  Country: US (occurrence: US)
  Receive Date: 20180202
  Receipt Date: 20180202
  Transmission Date: 20180509
  Serious: No
  Sender: FDA-Public Use
  Company Number: None

PATIENT
  Age: 38 Year
  Sex: Female

DRUGS (1)
  1. BENLYSTA [Suspect]
     Active Substance: BELIMUMAB
     Indication: SYSTEMIC LUPUS ERYTHEMATOSUS
     Dosage: 1 PEN WEEKLY SUBCUTANEOUSLY
     Route: 058
     Dates: start: 20171116

REACTIONS (2)
  - Fatigue [None]
  - Systemic lupus erythematosus [None]

NARRATIVE: CASE EVENT DATE: 20171115
